FAERS Safety Report 7764768-9 (Version None)
Quarter: 2011Q3

REPORT INFORMATION
  Report Type: 
  Country: None (occurrence: None)
  Receive Date: 20110921
  Receipt Date: 20110921
  Transmission Date: 20111222
  Serious: Yes (Life-Threatening, Hospitalization, Other)
  Sender: FDA-Public Use
  Company Number: None

PATIENT
  Age: 44 Year
  Sex: Male
  Weight: 117.2 kg

DRUGS (4)
  1. CRESTOR [Suspect]
     Indication: HYPERLIPIDAEMIA
     Dosage: 40MG
     Route: 048
  2. METOPROLOL TARTRATE [Concomitant]
     Route: 048
  3. PRINZIDE 10/12.5 [Concomitant]
     Route: 048
  4. CELEXA [Concomitant]
     Route: 048

REACTIONS (9)
  - GAIT DISTURBANCE [None]
  - RHABDOMYOLYSIS [None]
  - PANCREATITIS ACUTE [None]
  - ANAEMIA [None]
  - HYPONATRAEMIA [None]
  - HYPOTENSION [None]
  - RENAL FAILURE ACUTE [None]
  - THROMBOCYTOPENIA [None]
  - PANCREATIC MASS [None]
